FAERS Safety Report 25661287 (Version 2)
Quarter: 2025Q4

REPORT INFORMATION
  Report Type: Spontaneous
  Country: CA (occurrence: CA)
  Receive Date: 20250808
  Receipt Date: 20251127
  Transmission Date: 20260119
  Serious: Yes (Death)
  Sender: HLS THERAPEUTICS
  Company Number: CA-HLS-202502088

PATIENT
  Age: 64 Year
  Sex: Female
  Weight: 77 kg

DRUGS (2)
  1. CLOZAPINE [Suspect]
     Active Substance: CLOZAPINE
     Indication: Schizophrenia
     Dosage: TABLETS DOSAGE FORM
     Route: 065
  2. CLOZAPINE [Suspect]
     Active Substance: CLOZAPINE
     Indication: Schizophrenia
     Dosage: 2 EVERY 1 DAYS
     Route: 065

REACTIONS (3)
  - Death [Fatal]
  - Pneumonia [Fatal]
  - Respiratory failure [Fatal]
